FAERS Safety Report 7827705-4 (Version None)
Quarter: 2011Q4

REPORT INFORMATION
  Report Type: 
  Country: None (occurrence: None)
  Receive Date: 20111019
  Receipt Date: 20111019
  Transmission Date: 20120403
  Serious: Yes (Other)
  Sender: FDA-Public Use
  Company Number: None

PATIENT
  Sex: Male
  Weight: 100.5 kg

DRUGS (10)
  1. CITALOPRAM HYDROBROMIDE [Concomitant]
  2. AVAPRO [Concomitant]
  3. ACTOS [Concomitant]
  4. MINOCYCLINE HCL [Concomitant]
  5. PROCHLORPERAZINE [Concomitant]
  6. ASPIRIN [Concomitant]
  7. NEXIUM [Concomitant]
  8. FERAHEME [Suspect]
     Indication: IRON DEFICIENCY ANAEMIA
     Dosage: 510 MG ONE TIME INTRAVENOUS PUSH OVER 3 MINUTES
     Route: 042
     Dates: start: 20110629
  9. FERAHEME [Suspect]
     Indication: IRON DEFICIENCY ANAEMIA
     Dosage: 510 MG ONE TIME INTRAVENOUS PUSH OVER 3 MINUTES
     Route: 042
     Dates: start: 20110706
  10. NIASPAN [Concomitant]

REACTIONS (1)
  - BACK PAIN [None]
